FAERS Safety Report 7709124-4 (Version None)
Quarter: 2011Q3

REPORT INFORMATION
  Report Type: 
  Country: None (occurrence: None)
  Receive Date: 20110825
  Receipt Date: 20110811
  Transmission Date: 20111222
  Serious: Yes (Other)
  Sender: FDA-Public Use
  Company Number: PHHY2011DE67522

PATIENT
  Sex: Male
  Weight: 80 kg

DRUGS (6)
  1. PREDNISOLONE [Concomitant]
     Indication: FIBROMYALGIA
     Dosage: 3.75 MG, QD
     Dates: start: 20100101
  2. DIOVAN HCT [Suspect]
     Dosage: 1 DF, QD
     Route: 048
     Dates: start: 20031013, end: 20110727
  3. HYDROCHLOROTHIAZIDE [Suspect]
     Dosage: UNK UKN, UNK
  4. ASPIRIN [Concomitant]
     Indication: PERIPHERAL ARTERIAL OCCLUSIVE DISEASE
     Dosage: 100 MG, UNK
  5. PANTOPRAZOLE [Concomitant]
     Dosage: UNK UKN, UNK
  6. FLUVASTATIN SODIUM [Concomitant]
     Indication: METABOLIC DISORDER
     Dosage: 2 DF, PER WEEK

REACTIONS (7)
  - MYELODYSPLASTIC SYNDROME [None]
  - ANAEMIA [None]
  - HAEMORRHAGE [None]
  - PANCYTOPENIA [None]
  - LEUKOPENIA [None]
  - PLATELET COUNT DECREASED [None]
  - HAEMOGLOBIN DECREASED [None]
